FAERS Safety Report 4356266-X (Version None)
Quarter: 2004Q2

REPORT INFORMATION
  Report Type: 
  Country: None (occurrence: None)
  Receive Date: 20040511
  Receipt Date: 20040423
  Transmission Date: 20050107
  Serious: Yes (Hospitalization, Other)
  Sender: FDA-Public Use
  Company Number: 2004028330

PATIENT
  Sex: Female

DRUGS (2)
  1. ZOLOFT [Suspect]
     Indication: ANXIETY
     Dosage: 50 MG (1 IN 1 D)
  2. DIAZEPAM [Concomitant]

REACTIONS (4)
  - EMOTIONAL DISTRESS [None]
  - MUTISM [None]
  - SCREAMING [None]
  - TREMOR [None]
